FAERS Safety Report 22305853 (Version 1)
Quarter: 2023Q2

REPORT INFORMATION
  Report Type: Report from Study
  Country: CA (occurrence: CA)
  Receive Date: 20230511
  Receipt Date: 20230511
  Transmission Date: 20230722
  Serious: Yes (Hospitalization, Other)
  Sender: FDA-Public Use
  Company Number: CA-JNJFOC-20221236538

PATIENT
  Age: 51 Year
  Sex: Female

DRUGS (2)
  1. REMICADE [Suspect]
     Active Substance: INFLIXIMAB
     Indication: Colitis ulcerative
     Dosage: REMICADE HELD
     Route: 041
     Dates: start: 20221025
  2. PREDNISONE [Concomitant]
     Active Substance: PREDNISONE
     Indication: Product used for unknown indication
     Route: 065

REACTIONS (22)
  - Infusion related reaction [Recovering/Resolving]
  - Lupus-like syndrome [Unknown]
  - Haematochezia [Not Recovered/Not Resolved]
  - Hernia [Unknown]
  - Thrombosis [Unknown]
  - Small intestinal obstruction [Unknown]
  - Skin disorder [Unknown]
  - Neuralgia [Unknown]
  - General physical health deterioration [Unknown]
  - Anorectal discomfort [Not Recovered/Not Resolved]
  - Burning sensation [Not Recovered/Not Resolved]
  - Mucous stools [Not Recovered/Not Resolved]
  - Incorrect drug administration rate [Unknown]
  - Proctalgia [Unknown]
  - Defaecation urgency [Unknown]
  - Muscle tightness [Unknown]
  - Colitis [Not Recovered/Not Resolved]
  - Chest pain [Unknown]
  - Pain in extremity [Unknown]
  - Frequent bowel movements [Unknown]
  - Serum sickness [Not Recovered/Not Resolved]
  - Drug ineffective [Unknown]

NARRATIVE: CASE EVENT DATE: 20220101
